FAERS Safety Report 17007740 (Version 1)
Quarter: 2019Q4

REPORT INFORMATION
  Report Type: Spontaneous
  Country: GB (occurrence: GB)
  Receive Date: 20191108
  Receipt Date: 20191108
  Transmission Date: 20200122
  Serious: Yes (Life-Threatening, Other)
  Sender: FDA-Public Use
  Company Number: GB-AMGEN-GBRSP2019182099

PATIENT
  Age: 93 Year
  Sex: Male
  Weight: 55 kg

DRUGS (4)
  1. RITUXIMAB. [Suspect]
     Active Substance: RITUXIMAB
     Indication: ANTINEUTROPHIL CYTOPLASMIC ANTIBODY
     Dosage: 1 GRAM
     Route: 042
     Dates: start: 20170817
  2. PROLIA [Suspect]
     Active Substance: DENOSUMAB
     Indication: BONE DISORDER
     Dosage: 60 MILLIGRAM
     Route: 042
     Dates: start: 20180514
  3. PREDNISOLONE. [Concomitant]
     Active Substance: PREDNISOLONE
  4. CO-AMOXICLAVE [Concomitant]
     Active Substance: AMOXICILLIN\CLAVULANATE POTASSIUM

REACTIONS (1)
  - Infection in an immunocompromised host [Unknown]

NARRATIVE: CASE EVENT DATE: 20180711
